FAERS Safety Report 19064244 (Version 1)
Quarter: 2021Q1

REPORT INFORMATION
  Report Type: Report from Study
  Country: CN (occurrence: CN)
  Receive Date: 20210326
  Receipt Date: 20210326
  Transmission Date: 20210420
  Serious: Yes (Hospitalization)
  Sender: FDA-Public Use
  Company Number: CN-PFIZER INC-2021314889

PATIENT
  Age: 42 Year
  Sex: Male
  Weight: 66.5 kg

DRUGS (17)
  1. POLYENE PHOSPHATIDYLCHOLINE [Concomitant]
     Active Substance: PHOSPHOLIPID
     Dosage: UNK
     Dates: start: 20190628, end: 20190710
  2. POLYENE PHOSPHATIDYLCHOLINE [Concomitant]
     Active Substance: PHOSPHOLIPID
     Dosage: UNK
     Dates: start: 20190711, end: 20190716
  3. POLYENE PHOSPHATIDYLCHOLINE [Concomitant]
     Active Substance: PHOSPHOLIPID
     Dosage: UNK
     Dates: start: 20190604, end: 20190610
  4. POLYENE PHOSPHATIDYLCHOLINE [Concomitant]
     Active Substance: PHOSPHOLIPID
     Dosage: UNK
     Dates: start: 20190717, end: 20190825
  5. POLYENE PHOSPHATIDYLCHOLINE [Concomitant]
     Active Substance: PHOSPHOLIPID
     Dosage: UNK
     Dates: start: 20190917, end: 20191116
  6. METHOTREXATE SODIUM. [Suspect]
     Active Substance: METHOTREXATE SODIUM
     Indication: RHEUMATOID ARTHRITIS
     Dosage: ON 05JUL2019, RECEIVED MOST RECENT DOSE OF BLINDED METHOTREXATE PRIOR TO AE/SAE ONSET. (1 IN 1 WK)
     Route: 048
     Dates: start: 20190405
  7. CEFPIRAMIDE SODIUM [Concomitant]
     Active Substance: CEFPIRAMIDE SODIUM
     Dosage: UNK
     Dates: start: 20190709, end: 20190716
  8. VITAMIN B6 [Concomitant]
     Active Substance: PYRIDOXINE HYDROCHLORIDE
     Indication: NUTRITIONAL SUPPLEMENTATION
     Dosage: UNK
     Dates: start: 20190709, end: 20190716
  9. PHLOROGLUCINOL [Concomitant]
     Active Substance: PHLOROGLUCINOL
     Dosage: UNK
     Dates: start: 20190709, end: 20190716
  10. DOMPERIDONE [Concomitant]
     Active Substance: DOMPERIDONE
     Dosage: UNK
     Dates: start: 20190713, end: 20190716
  11. VITAMIN C [Concomitant]
     Active Substance: ASCORBIC ACID
     Indication: NUTRITIONAL SUPPLEMENTATION
     Dosage: UNK
     Dates: start: 20190709, end: 20190716
  12. MAGNESIUM SULFATE. [Concomitant]
     Active Substance: MAGNESIUM SULFATE
     Dosage: UNK
     Dates: start: 20190709, end: 20190716
  13. FOLIC ACID. [Concomitant]
     Active Substance: FOLIC ACID
     Dosage: UNK
     Dates: start: 20190103
  14. TOCILIZUMAB. [Suspect]
     Active Substance: TOCILIZUMAB
     Indication: RHEUMATOID ARTHRITIS
     Dosage: PRE?FILLED SYRINGE, ON 27JUN2019, RECEIVED MOST RECENT DOSE OF BLINDED TOCILIZUMAB PRIOR TO AE/SAE O
     Route: 058
     Dates: start: 20190403
  15. POTASSIUM CHLORIDE. [Concomitant]
     Active Substance: POTASSIUM CHLORIDE
     Indication: NUTRITIONAL SUPPLEMENTATION
     Dosage: UNK
     Dates: start: 20190709, end: 20190716
  16. OMEPRAZOLE SODIUM [Concomitant]
     Active Substance: OMEPRAZOLE SODIUM
     Dosage: UNK
     Dates: start: 20190709, end: 20190716
  17. POLYENE PHOSPHATIDYLCHOLINE [Concomitant]
     Active Substance: PHOSPHOLIPID
     Dosage: UNK
     Dates: start: 20191011, end: 20191116

REACTIONS (1)
  - Cholecystitis [Recovered/Resolved with Sequelae]

NARRATIVE: CASE EVENT DATE: 20190708
